FAERS Safety Report 20832429 (Version 1)
Quarter: 2022Q2

REPORT INFORMATION
  Report Type: Spontaneous
  Country: US (occurrence: None)
  Receive Date: 20220513
  Receipt Date: 20220513
  Transmission Date: 20220721
  Serious: Yes (unspecified)
  Sender: FDA-Public Use
  Company Number: None

PATIENT
  Age: 28 Year
  Sex: Female
  Weight: 76.97 kg

DRUGS (2)
  1. BEBTELOVIMAB [Suspect]
     Active Substance: BEBTELOVIMAB
  2. Bebtelovimab 175 mg l 2 ml [Concomitant]
     Dates: start: 20220509, end: 20220509

REACTIONS (6)
  - Limb discomfort [None]
  - Chest discomfort [None]
  - Chest discomfort [None]
  - Dyspnoea [None]
  - Heart rate increased [None]
  - Respiratory rate increased [None]

NARRATIVE: CASE EVENT DATE: 20220509
